FAERS Safety Report 9632365 (Version 1)
Quarter: 2013Q4

REPORT INFORMATION
  Report Type: Spontaneous
  Country: FR (occurrence: None)
  Receive Date: 20131016
  Receipt Date: 20131016
  Transmission Date: 20140711
  Serious: Yes (Other)
  Sender: FDA-Public Use
  Company Number: 2013P1019934

PATIENT
  Age: 29 Day
  Sex: Male
  Weight: 1.46 kg

DRUGS (4)
  1. DOXAPRAM [Suspect]
     Indication: RESPIRATORY DISTRESS
     Route: 048
  2. FUROSEMIDE [Suspect]
     Indication: WEIGHT INCREASED
  3. CAFFEINE [Suspect]
  4. POTASSIUM [Concomitant]

REACTIONS (1)
  - Hypokalaemia [None]
